FAERS Safety Report 24712101 (Version 2)
Quarter: 2024Q4

REPORT INFORMATION
  Report Type: Spontaneous
  Country: US (occurrence: US)
  Receive Date: 20241209
  Receipt Date: 20241211
  Transmission Date: 20250114
  Serious: No
  Sender: PFIZER
  Company Number: US-PFIZER INC-202400316363

PATIENT
  Age: 68 Year
  Sex: Male

DRUGS (8)
  1. TRASTUZUMAB [Suspect]
     Active Substance: TRASTUZUMAB
     Indication: Colon cancer
     Dosage: UNK
  2. TRASTUZUMAB [Suspect]
     Active Substance: TRASTUZUMAB
     Indication: Human epidermal growth factor receptor positive
  3. TRASTUZUMAB [Suspect]
     Active Substance: TRASTUZUMAB
     Indication: Renin-angiotensin system inhibition
  4. TRASTUZUMAB [Suspect]
     Active Substance: TRASTUZUMAB
     Indication: Metastasis
  5. TUKYSA [Suspect]
     Active Substance: TUCATINIB
     Indication: Colon cancer
     Dosage: 300 MG, 2X/DAY
  6. TUKYSA [Suspect]
     Active Substance: TUCATINIB
     Indication: Human epidermal growth factor receptor positive
  7. TUKYSA [Suspect]
     Active Substance: TUCATINIB
     Indication: Renin-angiotensin system inhibition
  8. TUKYSA [Suspect]
     Active Substance: TUCATINIB
     Indication: Metastasis

REACTIONS (1)
  - Disease progression [Unknown]
